FAERS Safety Report 8371616-5 (Version None)
Quarter: 2012Q2

REPORT INFORMATION
  Report Type: 
  Country: None (occurrence: None)
  Receive Date: 20120518
  Receipt Date: 20120507
  Transmission Date: 20120825
  Serious: Yes (Other)
  Sender: FDA-Public Use
  Company Number: DE-NICOBRDEV-2012-08191

PATIENT
  Sex: Female
  Weight: 70 kg

DRUGS (8)
  1. HEPARIN RATIO 60 000 [Concomitant]
     Indication: PRODUCT USED FOR UNKNOWN INDICATION
     Dosage: RATIO 60,000
     Route: 065
  2. CORTISONE ACETATE [Concomitant]
     Indication: PRODUCT USED FOR UNKNOWN INDICATION
     Dosage: UNK
     Route: 065
     Dates: start: 20120101
  3. RANITIDIN 150 [Concomitant]
     Indication: PRODUCT USED FOR UNKNOWN INDICATION
     Dosage: UNK
     Route: 065
  4. OMEPRAZOLE [Concomitant]
     Indication: PRODUCT USED FOR UNKNOWN INDICATION
     Dosage: 20 MG, UNK
     Route: 065
  5. L THYROXIN 100/150 [Concomitant]
     Indication: PRODUCT USED FOR UNKNOWN INDICATION
     Dosage: 100/150
     Route: 065
     Dates: start: 20110801
  6. ANTISTAX EXTRA [Concomitant]
     Indication: PRODUCT USED FOR UNKNOWN INDICATION
     Route: 065
  7. VOLTAREN [Concomitant]
     Indication: PRODUCT USED FOR UNKNOWN INDICATION
     Route: 065
  8. OXYBUTYNIN [Suspect]
     Indication: CYSTOPEXY
     Dosage: EVERY 3 DAYS
     Route: 062
     Dates: start: 20120401

REACTIONS (3)
  - RETINITIS PIGMENTOSA [None]
  - VISUAL ACUITY REDUCED [None]
  - CONDITION AGGRAVATED [None]
